FAERS Safety Report 8971040 (Version 1)
Quarter: 2012Q4

REPORT INFORMATION
  Report Type: 
  Country: US (occurrence: US)
  Receive Date: 20121218
  Receipt Date: 20121218
  Transmission Date: 20130627
  Serious: Yes (Other)
  Sender: FDA-Public Use
  Company Number: US-BRISTOL-MYERS SQUIBB COMPANY-16475774

PATIENT
  Sex: Female

DRUGS (2)
  1. ABILIFY TABS 2 MG [Suspect]
  2. CYMBALTA [Concomitant]

REACTIONS (2)
  - Dysphagia [Unknown]
  - Throat tightness [Unknown]
